FAERS Safety Report 7196952-X (Version None)
Quarter: 2010Q4

REPORT INFORMATION
  Report Type: 
  Country: None (occurrence: None)
  Receive Date: 20101224
  Receipt Date: 20101222
  Transmission Date: 20110411
  Serious: Yes (Other)
  Sender: FDA-Public Use
  Company Number: US-BIOGENIDEC-2009BI039354

PATIENT
  Age: 30 Year
  Sex: Female

DRUGS (7)
  1. AVONEX [Suspect]
     Indication: MULTIPLE SCLEROSIS
     Dosage: BASED ON LMP
     Route: 030
     Dates: end: 20091109
  2. AVONEX [Suspect]
     Route: 030
     Dates: start: 20100723
  3. LEXAPRO [Concomitant]
     Indication: DEPRESSION
     Dates: start: 20070101
  4. VITAMIN D-3 [Concomitant]
     Indication: SUPPLEMENTATION THERAPY
     Route: 048
     Dates: start: 20090515
  5. HUMALOG [Concomitant]
     Indication: DIABETES MELLITUS
     Dosage: DOSE UNIT:50
     Route: 058
     Dates: start: 20050101
  6. DIOVAN [Concomitant]
     Indication: MYALGIA
     Route: 048
  7. ASCORBIC ACID [Concomitant]
     Indication: SUPPLEMENTATION THERAPY
     Route: 048
     Dates: start: 20090515

REACTIONS (2)
  - HYPERTENSION [None]
  - PREGNANCY [None]
